FAERS Safety Report 12252360 (Version 2)
Quarter: 2016Q2

REPORT INFORMATION
  Report Type: Spontaneous
  Country: JP (occurrence: JP)
  Receive Date: 20160411
  Receipt Date: 20160429
  Transmission Date: 20160815
  Serious: Yes (Other)
  Sender: FDA-Public Use
  Company Number: JP-SUN PHARMACEUTICAL INDUSTRIES LTD-2016RR-114537

PATIENT
  Age: 75 Year
  Sex: Female

DRUGS (11)
  1. TRASTUZUMAB [Suspect]
     Active Substance: TRASTUZUMAB
     Indication: BREAST CANCER METASTATIC
     Dosage: 3 MG/KG, EVERY 2 WEEKS
     Route: 065
  2. 5-FLUOROURACIL [Suspect]
     Active Substance: FLUOROURACIL
     Indication: CHEMOTHERAPY
     Dosage: UNK
     Route: 042
  3. TEGAFUR [Suspect]
     Active Substance: TEGAFUR
     Indication: BREAST CANCER
     Dosage: 300 MG, DAILY
     Route: 065
  4. DOCETAXEL. [Suspect]
     Active Substance: DOCETAXEL
     Indication: BREAST CANCER METASTATIC
     Dosage: 30 MG/M2, EVERY TWO WEEKS
     Route: 065
  5. CAPECITABINE. [Suspect]
     Active Substance: CAPECITABINE
     Indication: BREAST CANCER METASTATIC
     Dosage: 2400 MG, DAILY
     Route: 065
  6. ANTHRACYCLINE [Suspect]
     Active Substance: UNSPECIFIED INGREDIENT
     Indication: CHEMOTHERAPY
     Dosage: LOW-DOSE
     Route: 065
  7. CYCLOPHOSPHAMIDE. [Suspect]
     Active Substance: CYCLOPHOSPHAMIDE
     Indication: CHEMOTHERAPY
     Dosage: UNK
     Route: 042
  8. METHOTREXATE [Suspect]
     Active Substance: METHOTREXATE
     Indication: CHEMOTHERAPY
     Dosage: UNK
     Route: 042
  9. ZOLEDRONIC ACID [Concomitant]
     Active Substance: ZOLEDRONIC ACID
     Indication: BREAST CANCER METASTATIC
     Dosage: 4 MG, ONCE PER 4 MONTHS
     Route: 065
  10. URACIL [Suspect]
     Active Substance: URACIL
     Indication: BREAST CANCER
     Dosage: 300 MG, DAILY
     Route: 065
  11. LAPATINIB [Suspect]
     Active Substance: LAPATINIB
     Indication: BREAST CANCER METASTATIC
     Dosage: 1250 MG, DAILY
     Route: 065

REACTIONS (2)
  - Disease progression [Recovered/Resolved]
  - Drug ineffective [Unknown]
